FAERS Safety Report 9736535 (Version 1)
Quarter: 2013Q4

REPORT INFORMATION
  Report Type: Spontaneous
  Country: US (occurrence: US)
  Receive Date: 20131206
  Receipt Date: 20131206
  Transmission Date: 20140711
  Serious: No
  Sender: FDA-Public Use
  Company Number: US-BIOGENIDEC-2013BI095359

PATIENT
  Age: 46 Year
  Sex: Female
  Weight: 79 kg

DRUGS (14)
  1. TECFIDERA [Suspect]
     Indication: PRODUCT USED FOR UNKNOWN INDICATION
     Route: 048
  2. PROZAC [Concomitant]
  3. MAXALT [Concomitant]
  4. ESTRADIOL [Concomitant]
  5. ZOFRAN [Concomitant]
  6. ADDERALL [Concomitant]
  7. XANAX [Concomitant]
  8. VICODIN [Concomitant]
  9. TOPAMAX [Concomitant]
  10. SOMA [Concomitant]
  11. PRENATAL 19 [Concomitant]
  12. DRAMAMINE [Concomitant]
  13. DETROL LA [Concomitant]
  14. BABY ASPIRIN [Concomitant]

REACTIONS (7)
  - Flatulence [Unknown]
  - Fatigue [Unknown]
  - Flushing [Not Recovered/Not Resolved]
  - Abdominal discomfort [Not Recovered/Not Resolved]
  - Diarrhoea [Unknown]
  - Abdominal pain upper [Unknown]
  - Nausea [Unknown]
